FAERS Safety Report 7085866-1 (Version None)
Quarter: 2010Q4

REPORT INFORMATION
  Report Type: 
  Country: None (occurrence: None)
  Receive Date: 20101105
  Receipt Date: 20101025
  Transmission Date: 20110411
  Serious: Yes (Other)
  Sender: FDA-Public Use
  Company Number: US-ROCHE-738024

PATIENT
  Age: 60 Year
  Sex: Female
  Weight: 90.7 kg

DRUGS (8)
  1. BONIVA [Suspect]
     Route: 065
  2. FLONASE [Concomitant]
  3. INSULINS [Concomitant]
  4. ADVAIR DISKUS 100/50 [Concomitant]
  5. SINGULAIR [Concomitant]
  6. ALLEGRA [Concomitant]
  7. NORVASC [Concomitant]
  8. LOSARTAN [Concomitant]

REACTIONS (1)
  - RENAL FAILURE [None]
